FAERS Safety Report 9294755 (Version 2)
Quarter: 2013Q2

REPORT INFORMATION
  Report Type: Spontaneous
  Country: US (occurrence: US)
  Receive Date: 20130517
  Receipt Date: 20130606
  Transmission Date: 20140414
  Serious: No
  Sender: FDA-Public Use
  Company Number: US-PFIZER INC-2013149981

PATIENT
  Age: 64 Year
  Sex: Male
  Weight: 85.26 kg

DRUGS (23)
  1. VIAGRA [Suspect]
     Indication: ERECTILE DYSFUNCTION
     Dosage: 100 MG, AS NEEDED
     Route: 048
     Dates: start: 2013, end: 2013
  2. ALDACTAZIDE [Concomitant]
     Dosage: 50/50 MG, 1X/DAY
  3. ALLOPURINOL [Concomitant]
     Dosage: 300 MG, 1X/DAY
  4. AMBIEN [Concomitant]
     Dosage: 12.5 MG, 1X/DAY
  5. AMLODIPINE [Concomitant]
     Dosage: 10 MG, 1X/DAY
  6. ATENOLOL [Concomitant]
     Dosage: 25 MG, 2X/DAY
     Route: 048
  7. BENTYL [Concomitant]
     Dosage: 20 MG, 1X/DAY
  8. CATAPRES-TTS [Concomitant]
     Dosage: 0.1 MG, ONCE A WEEK
  9. CITRACAL MAXIMUM + D [Concomitant]
     Dosage: UNK
  10. AVODART [Concomitant]
     Dosage: 0.5 MG, 1X/DAY
  11. COMBIVENT [Concomitant]
     Dosage: UNK
     Route: 055
  12. ESCITALOPRAM [Concomitant]
     Dosage: 10 MG, 1X/DAY
  13. FAMOTIDINE [Concomitant]
     Dosage: 10 MG, 2X/DAY
  14. FLAGYL [Concomitant]
     Dosage: 500 MG, 3X/DAY
  15. FLOMAX [Concomitant]
     Dosage: 0.4 MG, 1X/DAY
  16. GABAPENTIN [Concomitant]
     Dosage: 300 MG, 1X/DAY
  17. LEXAPRO [Concomitant]
     Dosage: 10 MG, 2X/DAY
  18. LISINOPRIL [Concomitant]
     Dosage: 20 MG, 1X/DAY
  19. PANTOPRAZOLE [Concomitant]
     Dosage: 40 MG, 1X/DAY
  20. PHENERGAN [Concomitant]
     Dosage: 25 MG, AS NEEDED
     Route: 048
  21. SIMETHICONE [Concomitant]
     Dosage: 80 MG, AS NEEDED
  22. TRICOR [Concomitant]
     Dosage: 145 MG, 1X/DAY
  23. ZOLPIDEM [Concomitant]
     Dosage: 5 MG, 1X/DAY
     Route: 048

REACTIONS (1)
  - Drug ineffective [Unknown]
